FAERS Safety Report 6927918-X (Version None)
Quarter: 2010Q3

REPORT INFORMATION
  Report Type: 
  Country: None (occurrence: None)
  Receive Date: 20100817
  Receipt Date: 20100805
  Transmission Date: 20110219
  Serious: Yes (Death, Other)
  Sender: FDA-Public Use
  Company Number: KR-PFIZER INC-2010098677

PATIENT
  Age: 63 Year
  Sex: Female

DRUGS (4)
  1. CYTARABINE [Suspect]
     Indication: ACUTE MYELOID LEUKAEMIA
     Dosage: UNK
     Dates: start: 20080215
  2. IDARUBICIN HCL [Suspect]
     Indication: ACUTE MYELOID LEUKAEMIA
     Dosage: UNK
     Dates: start: 20080215
  3. CEFTRIAXONE [Concomitant]
     Dosage: UNK
     Dates: start: 20080219
  4. ITRACONAZOLE [Concomitant]
     Dosage: UNK
     Dates: start: 20080219

REACTIONS (4)
  - CAECITIS [None]
  - FEBRILE NEUTROPENIA [None]
  - MUCORMYCOSIS [None]
  - SEPTIC SHOCK [None]
